FAERS Safety Report 23114846 (Version 1)
Quarter: 2023Q4

REPORT INFORMATION
  Report Type: Spontaneous
  Country: DE (occurrence: DE)
  Receive Date: 20231027
  Receipt Date: 20231027
  Transmission Date: 20240109
  Serious: Yes (Other)
  Sender: FDA-Public Use
  Company Number: None

PATIENT
  Age: 52 Year
  Sex: Male
  Weight: 75 kg

DRUGS (2)
  1. RABEPRAZOLE [Suspect]
     Active Substance: RABEPRAZOLE
     Indication: Gastrooesophageal reflux disease
     Dosage: 10 MG OR 20 MG, FREQUENCY UNKNOWN
     Route: 048
     Dates: start: 20220301, end: 20230906
  2. PANTOPRAZOLE [Suspect]
     Active Substance: PANTOPRAZOLE
     Indication: Gastrooesophageal reflux disease
     Dosage: 10 MG OR 20 MG, FREQUENCY UNKNOWN
     Route: 048
     Dates: start: 20220301, end: 20230906

REACTIONS (7)
  - Circulatory collapse [Recovered/Resolved]
  - Blood pressure increased [Recovered/Resolved]
  - Presyncope [Recovered/Resolved]
  - Amnesia [Recovered/Resolved]
  - Nausea [Recovered/Resolved]
  - Asthenia [Recovered/Resolved]
  - Dizziness [Recovered/Resolved]

NARRATIVE: CASE EVENT DATE: 20230201
